FAERS Safety Report 5457224-4 (Version None)
Quarter: 2007Q3

REPORT INFORMATION
  Report Type: 
  Country: None (occurrence: None)
  Receive Date: 20070918
  Receipt Date: 20070129
  Transmission Date: 20080115
  Serious: No
  Sender: FDA-Public Use
  Company Number: US-ASTRAZENECA-2007UW01779

PATIENT
  Sex: Male

DRUGS (1)
  1. SEROQUEL [Suspect]
     Indication: DEMENTIA ALZHEIMER'S TYPE
     Dosage: 25 MG, 50 MG, 75 MG
     Route: 048

REACTIONS (3)
  - COORDINATION ABNORMAL [None]
  - FEELING ABNORMAL [None]
  - MOVEMENT DISORDER [None]
